FAERS Safety Report 5807549-5 (Version None)
Quarter: 2008Q3

REPORT INFORMATION
  Report Type: 
  Country: None (occurrence: None)
  Receive Date: 20080711
  Receipt Date: 20080630
  Transmission Date: 20090109
  Serious: Yes (Life-Threatening)
  Sender: FDA-Public Use
  Company Number: FR-ROCHE-568170

PATIENT
  Sex: Male

DRUGS (3)
  1. RIVOTRIL [Suspect]
     Indication: DRUG USE FOR UNKNOWN INDICATION
     Route: 048
     Dates: end: 20080325
  2. BUPRENORPHIN [Suspect]
     Indication: DRUG USE FOR UNKNOWN INDICATION
     Route: 042
     Dates: end: 20080325
  3. SUBUTEX [Suspect]
     Indication: DRUG USE FOR UNKNOWN INDICATION
     Dosage: FORM:SYRINGE; GENERIC UNKNOWN
     Route: 065
     Dates: end: 20080325

REACTIONS (5)
  - COMA [None]
  - CYTOLYTIC HEPATITIS [None]
  - HEPATOCELLULAR INJURY [None]
  - HYPOXIA [None]
  - MENDELSON'S SYNDROME [None]
